FAERS Safety Report 11137060 (Version 2)
Quarter: 2015Q3

REPORT INFORMATION
  Report Type: Spontaneous
  Country: JP (occurrence: JP)
  Receive Date: 20150526
  Receipt Date: 20150707
  Transmission Date: 20151125
  Serious: Yes (Other)
  Sender: FDA-Public Use
  Company Number: JP-GLAXOSMITHKLINE-JP2015JPN067857

PATIENT
  Age: 61 Year
  Sex: Male
  Weight: 72 kg

DRUGS (6)
  1. TENORMIN [Concomitant]
     Active Substance: ATENOLOL
     Indication: HYPERTENSION
     Dosage: UNK
  2. DIOVAN [Concomitant]
     Active Substance: VALSARTAN
     Indication: HYPERTENSION
     Dosage: UNK
  3. VOTRIENT [Suspect]
     Active Substance: PAZOPANIB HYDROCHLORIDE
     Dosage: 800 MG, 1D
     Route: 048
     Dates: start: 20140802, end: 20140918
  4. VOTRIENT [Suspect]
     Active Substance: PAZOPANIB HYDROCHLORIDE
     Dosage: 400 MG, 1D
     Route: 048
     Dates: start: 20141108
  5. VOTRIENT [Suspect]
     Active Substance: PAZOPANIB HYDROCHLORIDE
     Dosage: 200 MG, 1D
     Route: 048
     Dates: start: 20141025
  6. VOTRIENT [Suspect]
     Active Substance: PAZOPANIB HYDROCHLORIDE
     Indication: RENAL CANCER STAGE IV
     Dosage: 400 MG, 1D
     Route: 048
     Dates: start: 20140704

REACTIONS (8)
  - Hemianopia [Unknown]
  - Duodenal ulcer [Unknown]
  - Metastases to muscle [Unknown]
  - Pleural effusion [Unknown]
  - Optic neuritis [Unknown]
  - Metastases to central nervous system [Unknown]
  - Faeces discoloured [Unknown]
  - Visual acuity reduced [Unknown]

NARRATIVE: CASE EVENT DATE: 20140802
